FAERS Safety Report 12485857 (Version 1)
Quarter: 2016Q2

REPORT INFORMATION
  Report Type: Spontaneous
  Country: US (occurrence: US)
  Receive Date: 20160621
  Receipt Date: 20160621
  Transmission Date: 20160815
  Serious: No
  Sender: FDA-Public Use
  Company Number: US-BAYER-2016-113752

PATIENT
  Age: 61 Year
  Sex: Male

DRUGS (3)
  1. ADRIAMYCIN [Concomitant]
     Active Substance: DOXORUBICIN HYDROCHLORIDE
     Indication: LIPOSARCOMA
     Dosage: UNK
  2. IFOSFAMIDE. [Concomitant]
     Active Substance: IFOSFAMIDE
     Dosage: 2.5 G/M, THREE DAYS EVERY THREE WEEKS
  3. DACARBAZINE. [Suspect]
     Active Substance: DACARBAZINE
     Indication: LIPOSARCOMA
     Dosage: 100 MG, UNK
     Dates: start: 201012

REACTIONS (1)
  - Product use issue [None]
